FAERS Safety Report 20313102 (Version 1)
Quarter: 2022Q1

REPORT INFORMATION
  Report Type: Spontaneous
  Country: US (occurrence: US)
  Receive Date: 20220109
  Receipt Date: 20220109
  Transmission Date: 20220424
  Serious: Yes (Other)
  Sender: FDA-Public Use
  Company Number: US-LUPIN PHARMACEUTICALS INC.-2021-26549

PATIENT
  Age: 31 Year
  Sex: Male

DRUGS (6)
  1. MOXIFLOXACIN [Suspect]
     Active Substance: MOXIFLOXACIN
     Indication: Acanthamoeba keratitis
     Dosage: UNK UNK, QID
     Route: 065
  2. VORICONAZOLE [Suspect]
     Active Substance: VORICONAZOLE
     Indication: Acanthamoeba keratitis
     Dosage: 200 MILLIGRAM, QD
     Route: 048
  3. CHLORHEXIDINE [Suspect]
     Active Substance: CHLORHEXIDINE
     Indication: Acanthamoeba keratitis
     Dosage: 1 UNIT EVERY 1 HOUR
     Route: 061
  4. CHLORHEXIDINE [Suspect]
     Active Substance: CHLORHEXIDINE
     Dosage: UNK
     Route: 061
  5. POLIHEXANIDE [Suspect]
     Active Substance: POLIHEXANIDE
     Indication: Acanthamoeba keratitis
     Dosage: 1 UNIT EVERY 1 HOUR
     Route: 061
  6. POLIHEXANIDE [Suspect]
     Active Substance: POLIHEXANIDE
     Dosage: UNK
     Route: 061

REACTIONS (1)
  - Therapy non-responder [Unknown]
